FAERS Safety Report 7755150-9 (Version None)
Quarter: 2011Q3

REPORT INFORMATION
  Report Type: 
  Country: None (occurrence: None)
  Receive Date: 20110916
  Receipt Date: 20110909
  Transmission Date: 20111222
  Serious: No
  Sender: FDA-Public Use
  Company Number: US-PFIZER INC-2011214204

PATIENT
  Age: 46 Year
  Sex: Female
  Weight: 44.444 kg

DRUGS (6)
  1. XANAX [Suspect]
     Dosage: UNK
  2. TYVASO [Suspect]
     Indication: PULMONARY HYPERTENSION
     Dosage: 96 UG, (24 MCG, 4 IN 1)
     Dates: start: 20090909
  3. REVATIO [Concomitant]
     Dosage: UNK
  4. ULTRAM [Suspect]
     Dosage: UNK
  5. SOMA [Suspect]
     Dosage: UNK
  6. TRACLEER [Concomitant]
     Dosage: UNK

REACTIONS (5)
  - THROAT IRRITATION [None]
  - COUGH [None]
  - FATIGUE [None]
  - DIZZINESS [None]
  - PAIN IN JAW [None]
